FAERS Safety Report 5498176-0 (Version None)
Quarter: 2007Q4

REPORT INFORMATION
  Report Type: 
  Country: None (occurrence: None)
  Receive Date: 20071025
  Receipt Date: 20070409
  Transmission Date: 20080405
  Serious: No
  Sender: FDA-Public Use
  Company Number: A0646270A

PATIENT
  Age: 80 Year
  Sex: Female

DRUGS (5)
  1. ADVAIR DISKUS 100/50 [Suspect]
     Indication: DRUG USE FOR UNKNOWN INDICATION
     Route: 055
     Dates: start: 20070406
  2. SPIRIVA [Concomitant]
  3. LIPITOR [Concomitant]
  4. SINGULAIR [Concomitant]
  5. AVAPRO [Concomitant]

REACTIONS (1)
  - THROAT IRRITATION [None]
